FAERS Safety Report 19944540 (Version 1)
Quarter: 2021Q4

REPORT INFORMATION
  Report Type: Spontaneous
  Country: US (occurrence: US)
  Receive Date: 20211010
  Receipt Date: 20211010
  Transmission Date: 20220303
  Serious: Yes (Hospitalization, Other)
  Sender: FDA-Public Use
  Company Number: None

PATIENT
  Age: 61 Year
  Sex: Male
  Weight: 63.45 kg

DRUGS (9)
  1. RITUXAN [Suspect]
     Active Substance: RITUXIMAB
     Indication: Autoimmune disorder
     Route: 042
     Dates: start: 20210804, end: 20210807
  2. PLAQUENILE [Concomitant]
  3. IMURAN [Concomitant]
     Active Substance: AZATHIOPRINE
  4. SUCRALFATE [Concomitant]
     Active Substance: SUCRALFATE
  5. PREDNISONE [Concomitant]
     Active Substance: PREDNISONE
  6. PROTONIX [Concomitant]
     Active Substance: PANTOPRAZOLE SODIUM
  7. VITAMIN B12 [Concomitant]
     Active Substance: CYANOCOBALAMIN
  8. MUCINEX [Concomitant]
     Active Substance: GUAIFENESIN
  9. LYSINE [Concomitant]
     Active Substance: LYSINE

REACTIONS (5)
  - Abnormal loss of weight [None]
  - Odynophagia [None]
  - Dysphagia [None]
  - Fatigue [None]
  - Infusion related reaction [None]

NARRATIVE: CASE EVENT DATE: 20210806
